FAERS Safety Report 5794962-8 (Version None)
Quarter: 2008Q2

REPORT INFORMATION
  Report Type: 
  Country: None (occurrence: None)
  Receive Date: 20080630
  Receipt Date: 20080618
  Transmission Date: 20081010
  Serious: Yes (Other)
  Sender: FDA-Public Use
  Company Number: BR-ROCHE-571661

PATIENT
  Age: 86 Year
  Sex: Female
  Weight: 45 kg

DRUGS (5)
  1. CLONAZEPAM [Suspect]
     Indication: INSOMNIA
     Route: 048
     Dates: start: 20020101
  2. CLONAZEPAM [Suspect]
     Route: 048
     Dates: start: 20080616, end: 20080616
  3. CLONAZEPAM [Suspect]
     Route: 048
     Dates: start: 20080617, end: 20080617
  4. ATENOLOL [Concomitant]
     Indication: HYPERTENSION
  5. NIMODIPINE [Concomitant]
     Dosage: INDICATION: BRAIN OXYGENATION

REACTIONS (5)
  - AGITATION [None]
  - CEREBROVASCULAR ACCIDENT [None]
  - MEDICATION ERROR [None]
  - NO THERAPEUTIC RESPONSE [None]
  - PRURITUS [None]
